FAERS Safety Report 16117960 (Version 1)
Quarter: 2019Q1

REPORT INFORMATION
  Report Type: Spontaneous
  Country: PL (occurrence: PL)
  Receive Date: 20190326
  Receipt Date: 20190326
  Transmission Date: 20190418
  Serious: Yes (Other)
  Sender: FDA-Public Use
  Company Number: PL-ASTRAZENECA-2019SE44097

PATIENT
  Age: 54 Year
  Sex: Female

DRUGS (8)
  1. FULVESTRANT. [Suspect]
     Active Substance: FULVESTRANT
     Indication: BREAST CANCER
     Dosage: UNKNOWN
     Route: 065
     Dates: start: 201606, end: 201902
  2. ZOLEDRONIC ACID [Suspect]
     Active Substance: ZOLEDRONIC ACID
     Indication: BREAST CANCER
     Route: 065
     Dates: start: 201606, end: 201902
  3. FULVESTRANT. [Suspect]
     Active Substance: FULVESTRANT
     Indication: BONE CANCER
     Route: 065
  4. FULVESTRANT. [Suspect]
     Active Substance: FULVESTRANT
     Indication: BREAST CANCER
     Route: 065
  5. ZOLEDRONIC ACID [Suspect]
     Active Substance: ZOLEDRONIC ACID
     Indication: METASTASES TO BONE
     Route: 065
  6. FULVESTRANT. [Suspect]
     Active Substance: FULVESTRANT
     Indication: BONE CANCER
     Dosage: UNKNOWN
     Route: 065
     Dates: start: 201606, end: 201902
  7. ZOLEDRONIC ACID [Suspect]
     Active Substance: ZOLEDRONIC ACID
     Indication: BREAST CANCER
     Route: 065
  8. ZOLEDRONIC ACID [Suspect]
     Active Substance: ZOLEDRONIC ACID
     Indication: METASTASES TO BONE
     Route: 065
     Dates: start: 201606, end: 201902

REACTIONS (2)
  - Malignant neoplasm progression [Unknown]
  - Metastases to bone [Unknown]
